FAERS Safety Report 7078473-8 (Version None)
Quarter: 2010Q4

REPORT INFORMATION
  Report Type: 
  Country: None (occurrence: None)
  Receive Date: 20101102
  Receipt Date: 20101020
  Transmission Date: 20110411
  Serious: Yes (Hospitalization)
  Sender: FDA-Public Use
  Company Number: PHHO2010US16140

PATIENT
  Sex: Male

DRUGS (5)
  1. BLINDED ALISKIREN ALI+TAB+CF [Suspect]
     Dosage: NO TREATMENT
  2. ENALAPRIL MALEATE [Suspect]
     Dosage: NO TREATMENT
  3. BLINDED NO TREATMENT RECEIVED NOMED [Suspect]
     Dosage: NO TREATMENT
  4. ALISKIREN [Suspect]
     Indication: CARDIAC FAILURE
     Dosage: 10 MG, QD
     Route: 048
     Dates: start: 20100803, end: 20101017
  5. COMPARATOR ENALAPRIL [Suspect]
     Indication: CARDIAC FAILURE
     Dosage: 10 MG
     Route: 048
     Dates: start: 20100803, end: 20101017

REACTIONS (1)
  - RENAL FAILURE [None]
